FAERS Safety Report 9468095 (Version 5)
Quarter: 2014Q1

REPORT INFORMATION
  Report Type: Spontaneous
  Country: CA (occurrence: CA)
  Receive Date: 20130821
  Receipt Date: 20140226
  Transmission Date: 20141002
  Serious: Yes (Death, Hospitalization)
  Sender: FDA-Public Use
  Company Number: CA-PFIZER INC-2013237808

PATIENT
  Age: 78 Year
  Sex: Female
  Weight: 48 kg

DRUGS (6)
  1. XALKORI [Suspect]
     Indication: NON-SMALL CELL LUNG CANCER
     Dosage: 250 MG, 2X/DAY
     Route: 048
     Dates: start: 20130510
  2. XALKORI [Suspect]
     Dosage: 200 MG, 2X/DAY
     Route: 048
  3. XALKORI [Suspect]
     Dosage: 250 MG, 2X/DAY
     Dates: end: 20140106
  4. FRAGMIN [Concomitant]
     Indication: DEEP VEIN THROMBOSIS
     Dosage: UNK
     Route: 058
     Dates: start: 201212, end: 20140106
  5. ASA [Concomitant]
     Indication: CEREBROVASCULAR ACCIDENT
     Dosage: UNK
     Route: 048
     Dates: start: 201212, end: 20140106
  6. DEXAMETHASONE [Concomitant]
     Indication: PALLIATIVE CARE
     Dosage: UNK
     Route: 048
     Dates: start: 201312, end: 20140106

REACTIONS (3)
  - Disease progression [Fatal]
  - Non-small cell lung cancer [Fatal]
  - Clostridium difficile colitis [Unknown]
